FAERS Safety Report 9321064 (Version 1)
Quarter: 2013Q2

REPORT INFORMATION
  Report Type: Spontaneous
  Country: IT (occurrence: None)
  Receive Date: 20130528
  Receipt Date: 20130528
  Transmission Date: 20140414
  Serious: Yes (Hospitalization)
  Sender: FDA-Public Use
  Company Number: 2012AP000366

PATIENT
  Age: 34 Year
  Sex: Female

DRUGS (2)
  1. FERRIPROX [Suspect]
     Indication: IRON OVERLOAD
     Route: 048
     Dates: start: 20111122, end: 20111218
  2. DEFERASIROX [Concomitant]

REACTIONS (4)
  - Agranulocytosis [None]
  - Staphylococcus test positive [None]
  - Streptococcus test positive [None]
  - Pharyngotonsillitis [None]
